FAERS Safety Report 10984952 (Version 1)
Quarter: 2015Q2

REPORT INFORMATION
  Report Type: Spontaneous
  Country: US (occurrence: US)
  Receive Date: 20150403
  Receipt Date: 20150403
  Transmission Date: 20150821
  Serious: Yes (Hospitalization, Other)
  Sender: FDA-Public Use
  Company Number: US-GLAXOSMITHKLINE-US2015043648

PATIENT
  Age: 56 Year
  Sex: Male

DRUGS (7)
  1. LORTAB (ACETAMINOPHEN + HYDROCODONE) [Concomitant]
  2. LASIX [Concomitant]
     Active Substance: FUROSEMIDE
  3. TOPROL XL [Concomitant]
     Active Substance: METOPROLOL SUCCINATE
  4. DILANTIN [Concomitant]
     Active Substance: PHENYTOIN
  5. XANAX [Concomitant]
     Active Substance: ALPRAZOLAM
  6. LAMICTAL [Suspect]
     Active Substance: LAMOTRIGINE
     Indication: SEIZURE
     Dosage: 325 MG, QD
     Dates: start: 20121229
  7. GLUCOVANCE [Concomitant]
     Active Substance: GLYBURIDE\METFORMIN HYDROCHLORIDE

REACTIONS (2)
  - Hepatic cancer [Not Recovered/Not Resolved]
  - Dehydration [Recovered/Resolved]

NARRATIVE: CASE EVENT DATE: 201410
